FAERS Safety Report 9008680 (Version 6)
Quarter: 2014Q2

REPORT INFORMATION
  Report Type: Spontaneous
  Country: US (occurrence: US)
  Receive Date: 20130111
  Receipt Date: 20140507
  Transmission Date: 20141212
  Serious: Yes (Hospitalization, Other)
  Sender: FDA-Public Use
  Company Number: US-PFIZER INC-2012262780

PATIENT
  Age: 67 Year
  Sex: Female
  Weight: 86.2 kg

DRUGS (26)
  1. PRISTIQ [Suspect]
     Indication: DEPRESSION
     Dosage: 50 MG, DAILY
     Route: 048
  2. PRISTIQ [Suspect]
     Indication: FIBROMYALGIA
     Dosage: 75 MG, 3X/DAY
     Route: 048
  3. PRISTIQ [Suspect]
     Dosage: 50 MG, 1X/DAY
     Route: 048
  4. PRISTIQ [Suspect]
     Dosage: 150 MG, DAILY
     Route: 048
  5. PRISTIQ [Suspect]
     Dosage: 100 MG, 1X/DAY
     Route: 048
  6. PRISTIQ [Suspect]
     Dosage: 100 MG, 3X/DAY
     Route: 048
  7. LYRICA [Suspect]
     Indication: FIBROMYALGIA
     Dosage: 100 MG, 2X/DAY
     Route: 048
  8. LYRICA [Suspect]
     Indication: NEUROPATHY PERIPHERAL
     Dosage: 100 MG, DAILY
     Route: 048
  9. LYRICA [Suspect]
     Dosage: 50 MG, DAILY
     Route: 048
  10. LYRICA [Suspect]
     Dosage: 75 MG, 3X/DAY
     Route: 048
  11. LYRICA [Suspect]
     Dosage: 100 MG, 3X/DAY
     Route: 048
  12. PROZAC [Suspect]
     Indication: DEPRESSION
     Dosage: 40 MG, DAILY
     Route: 048
  13. PROZAC [Suspect]
     Dosage: 20 MG, DAILY
     Route: 048
     Dates: start: 20120426, end: 201210
  14. ZYRTEC [Suspect]
     Dosage: 10 MG, DAILY
     Route: 048
     Dates: start: 20120426
  15. METFORMIN [Concomitant]
     Indication: TYPE 2 DIABETES MELLITUS
     Dosage: 1000 MG, 2X/DAY
  16. HYDROCODONE [Concomitant]
     Indication: PAIN
     Dosage: ^10/325 MG^, AS NEEDED
  17. ALPRAZOLAM [Concomitant]
     Dosage: 0.5 MG, UNK
  18. AMITRIPTYLINE [Concomitant]
     Dosage: 25 MG, UNK
  19. BIOTIN [Concomitant]
     Dosage: 5000 UG, UNK
  20. CALCIUM + VITD [Concomitant]
     Dosage: UNK
  21. LEVOTHYROXINE [Concomitant]
     Dosage: 150 UG, UNK
  22. GLIMEPIRIDE [Concomitant]
     Indication: TYPE 2 DIABETES MELLITUS
     Dosage: UNK, DAILY
  23. PRAVASTATIN [Concomitant]
     Dosage: UNK
  24. VITAMIN B12 [Concomitant]
     Dosage: UNK
  25. VITAMIN D [Concomitant]
     Dosage: UNK
  26. FOSAMAX [Concomitant]
     Dosage: UNK

REACTIONS (10)
  - Fall [Recovering/Resolving]
  - Thoracic vertebral fracture [Recovering/Resolving]
  - Spinal fracture [Recovering/Resolving]
  - Cardiac disorder [Unknown]
  - Vascular stenosis [Unknown]
  - Vitamin D deficiency [Unknown]
  - Weight increased [Unknown]
  - Malaise [Unknown]
  - Urinary tract infection [Recovered/Resolved]
  - Off label use [Unknown]
